FAERS Safety Report 13754523 (Version 2)
Quarter: 2017Q3

REPORT INFORMATION
  Report Type: Report from Study
  Country: NL (occurrence: NL)
  Receive Date: 20170714
  Receipt Date: 20170919
  Transmission Date: 20171127
  Serious: Yes (Hospitalization, Other)
  Sender: FDA-Public Use
  Company Number: NL-AMGEN-NLDSL2017104523

PATIENT
  Age: 67 Year
  Sex: Female

DRUGS (6)
  1. PACLITAXEL. [Concomitant]
     Active Substance: PACLITAXEL
     Dosage: UNK
     Dates: start: 201702
  2. LETROZOL [Concomitant]
     Active Substance: LETROZOLE
     Indication: BREAST CANCER
     Dosage: 2.5 MG, QD
     Dates: start: 201707
  3. XGEVA [Suspect]
     Active Substance: DENOSUMAB
     Dosage: UNK
     Route: 058
  4. MIRTAZAPIN [Concomitant]
     Active Substance: MIRTAZAPINE
     Dosage: 15 MG, QD
  5. XGEVA [Suspect]
     Active Substance: DENOSUMAB
     Indication: PROPHYLAXIS
     Dosage: 120 MG IN 1.7ML, Q4WK
     Route: 058
  6. QUETAPIN [Concomitant]
     Dosage: 12.5 MG, BID

REACTIONS (3)
  - Malaise [Not Recovered/Not Resolved]
  - Depressed mood [Not Recovered/Not Resolved]
  - Anxiety [Recovering/Resolving]

NARRATIVE: CASE EVENT DATE: 20170306
